FAERS Safety Report 12041562 (Version 4)
Quarter: 2016Q2

REPORT INFORMATION
  Report Type: Spontaneous
  Country: US (occurrence: US)
  Receive Date: 20160208
  Receipt Date: 20160412
  Transmission Date: 20160815
  Serious: No
  Sender: FDA-Public Use
  Company Number: US-PFIZER INC-2016025847

PATIENT
  Age: 69 Year
  Sex: Male
  Weight: 97.52 kg

DRUGS (2)
  1. XANAX [Suspect]
     Active Substance: ALPRAZOLAM
     Indication: ANXIETY
     Dosage: 1 MG, 2X/DAY
  2. XANAX [Suspect]
     Active Substance: ALPRAZOLAM
     Dosage: 0.5 MG, UNK (REGULAR PRIOR OFF + ON)

REACTIONS (1)
  - Drug ineffective [Recovered/Resolved]
